FAERS Safety Report 25143520 (Version 1)
Quarter: 2025Q2

REPORT INFORMATION
  Report Type: Spontaneous
  Country: US (occurrence: US)
  Receive Date: 20250401
  Receipt Date: 20250401
  Transmission Date: 20250716
  Serious: No
  Sender: HETERO
  Company Number: US-HETERO-HET2025US01478

PATIENT

DRUGS (1)
  1. PREGABALIN [Suspect]
     Active Substance: PREGABALIN
     Indication: Fibromyalgia
     Route: 065

REACTIONS (9)
  - Psychomotor hyperactivity [Unknown]
  - Dyspnoea [Unknown]
  - Therapy interrupted [Unknown]
  - Therapeutic response shortened [Unknown]
  - Memory impairment [Unknown]
  - Anxiety [Unknown]
  - Panic attack [Unknown]
  - Product quality issue [Unknown]
  - Drug ineffective [Unknown]
